FAERS Safety Report 13917216 (Version 1)
Quarter: 2017Q3

REPORT INFORMATION
  Report Type: Spontaneous
  Country: US (occurrence: None)
  Receive Date: 20170827
  Receipt Date: 20170827
  Transmission Date: 20171127
  Serious: Yes (Hospitalization)
  Sender: FDA-Public Use
  Company Number: None

PATIENT
  Sex: Female

DRUGS (2)
  1. CAPECITABINE 500 MG ACCORD [Suspect]
     Active Substance: CAPECITABINE
     Indication: BREAST CANCER FEMALE
     Dosage: 1,00 MG BID FOR 14 DAYS ON, 7 DAYS OFF PO
     Route: 048
     Dates: start: 20170804, end: 20170818
  2. CAPECITABINE 500 MG ACCORD [Suspect]
     Active Substance: CAPECITABINE
     Indication: METASTASES TO LIVER
     Dosage: 1,00 MG BID FOR 14 DAYS ON, 7 DAYS OFF PO
     Route: 048
     Dates: start: 20170804, end: 20170818

REACTIONS (1)
  - Critical illness [None]
